FAERS Safety Report 7589378-8 (Version None)
Quarter: 2011Q3

REPORT INFORMATION
  Report Type: 
  Country: None (occurrence: None)
  Receive Date: 20110705
  Receipt Date: 20110622
  Transmission Date: 20111222
  Serious: Yes (Other)
  Sender: FDA-Public Use
  Company Number: JP-ELI_LILLY_AND_COMPANY-JP201106006907

PATIENT
  Age: 50 Year
  Sex: Male

DRUGS (7)
  1. ZYPREXA [Suspect]
     Dosage: UNK
     Route: 048
  2. ZYPREXA [Suspect]
     Route: 048
  3. SELEGILINE [Concomitant]
     Route: 048
  4. SELEGILINE [Concomitant]
     Dosage: UNK
     Route: 048
  5. CARBAMAZEPINE [Concomitant]
     Dosage: UNK
     Route: 048
  6. TRAZODONE HCL [Concomitant]
     Dosage: UNK
     Route: 048
  7. VALPROATE SODIUM [Concomitant]
     Dosage: UNK
     Route: 048

REACTIONS (8)
  - HYPERTENSION [None]
  - SUICIDE ATTEMPT [None]
  - HYPERHIDROSIS [None]
  - HALLUCINATION, VISUAL [None]
  - INTENTIONAL OVERDOSE [None]
  - ALTERED STATE OF CONSCIOUSNESS [None]
  - GRAND MAL CONVULSION [None]
  - MYOCLONUS [None]
